FAERS Safety Report 14438155 (Version 1)
Quarter: 2018Q1

REPORT INFORMATION
  Report Type: Spontaneous
  Country: RU (occurrence: RU)
  Receive Date: 20180125
  Receipt Date: 20180125
  Transmission Date: 20180509
  Serious: Yes (Other)
  Sender: FDA-Public Use
  Company Number: RU-JNJFOC-20180125797

PATIENT
  Age: 33 Year
  Sex: Male

DRUGS (4)
  1. CEFTRIAXONUM [Concomitant]
     Indication: ANTIBIOTIC PROPHYLAXIS
     Route: 048
     Dates: start: 20170821
  2. CYKLOSERIN [Concomitant]
     Indication: TUBERCULOSIS
     Route: 048
     Dates: start: 20170822
  3. BEDAQUILINE [Suspect]
     Active Substance: BEDAQUILINE
     Indication: TUBERCULOSIS
     Route: 048
  4. PYRAZINAMIDUM [Concomitant]
     Indication: TUBERCULOSIS
     Route: 048
     Dates: start: 20170822

REACTIONS (1)
  - Electrocardiogram abnormal [Unknown]
